FAERS Safety Report 7200884-8 (Version None)
Quarter: 2010Q4

REPORT INFORMATION
  Report Type: 
  Country: None (occurrence: None)
  Receive Date: 20101228
  Receipt Date: 20101217
  Transmission Date: 20110411
  Serious: Yes (Other)
  Sender: FDA-Public Use
  Company Number: RU-PFIZER INC-2010165497

PATIENT
  Age: 12 Year
  Sex: Male

DRUGS (6)
  1. LYRICA [Suspect]
     Indication: EPILEPSY
     Dosage: 37.5 MG, 2X/DAY
     Route: 048
     Dates: start: 20100701, end: 20100101
  2. LYRICA [Suspect]
     Dosage: 75 MG, 2X/DAY
     Route: 048
     Dates: start: 20100101, end: 20100101
  3. LYRICA [Suspect]
     Dosage: 150 MG, 2X/DAY
     Route: 048
     Dates: start: 20100101
  4. FINLEPSIN [Concomitant]
     Indication: EPILEPSY
     Dosage: 400 MG, 3X/DAY
     Route: 048
  5. KEPPRA [Concomitant]
     Indication: EPILEPSY
     Dosage: 1000 MG IN THE MORNING + 1500 MG IN THE EVENING
     Route: 048
     Dates: end: 20100701
  6. KEPPRA [Concomitant]
     Dosage: 1000 MG IN THE MORNING AND 1250 MG IN THE EVENING
     Dates: start: 20100701, end: 20100101

REACTIONS (9)
  - BACTERIAL INFECTION [None]
  - BLOOD PRESSURE INCREASED [None]
  - DIPLOPIA [None]
  - IRRITABILITY [None]
  - MIGRAINE [None]
  - NAUSEA [None]
  - REFLUX OESOPHAGITIS [None]
  - RHINITIS [None]
  - VOMITING [None]
